FAERS Safety Report 7093175-X (Version None)
Quarter: 2010Q4

REPORT INFORMATION
  Report Type: 
  Country: None (occurrence: None)
  Receive Date: 20101110
  Receipt Date: 20080819
  Transmission Date: 20110411
  Serious: No
  Sender: FDA-Public Use
  Company Number: US-KINGPHARMUSA00001-K200800977

PATIENT
  Sex: Female
  Weight: 57.596 kg

DRUGS (5)
  1. LEVOXYL [Suspect]
     Indication: HYPOTHYROIDISM
     Dosage: 150 MCG, QD
     Route: 048
     Dates: start: 20080701
  2. BACLOFEN [Concomitant]
     Indication: SPASTIC PARAPLEGIA
     Dosage: 30 MG, TID
  3. WELLBUTRIN [Concomitant]
     Indication: ANTIDEPRESSANT THERAPY
     Dosage: UNK, QD
  4. ZOLOFT [Concomitant]
     Indication: ANTIDEPRESSANT THERAPY
     Dosage: 25 MG, QD
  5. LEXAPRO [Concomitant]
     Indication: ANTIDEPRESSANT THERAPY
     Dosage: 1/2 TAB ONE DAY 1 TAB NEXT DAY
     Dates: start: 20080701

REACTIONS (3)
  - FATIGUE [None]
  - INSOMNIA [None]
  - PANIC REACTION [None]
